FAERS Safety Report 8798786 (Version 3)
Quarter: 2013Q1

REPORT INFORMATION
  Report Type: Spontaneous
  Country: US (occurrence: US)
  Receive Date: 20120920
  Receipt Date: 20130228
  Transmission Date: 20140127
  Serious: Yes (Hospitalization, Other)
  Sender: FDA-Public Use
  Company Number: US-009507513-2011SP045027

PATIENT
  Sex: Female
  Weight: 81.65 kg

DRUGS (3)
  1. NUVARING [Suspect]
     Indication: CONTRACEPTION
     Dosage: UNK
     Route: 067
     Dates: start: 20070517, end: 20070923
  2. SERTRALINE HYDROCHLORIDE [Concomitant]
     Indication: ANXIETY
     Dosage: 100 MG, QD
     Route: 048
     Dates: end: 20070922
  3. ZANTAC [Concomitant]
     Indication: HIATUS HERNIA
     Dates: end: 20070922

REACTIONS (24)
  - Hypercoagulation [Unknown]
  - Pulmonary embolism [Recovered/Resolved]
  - Back pain [Unknown]
  - Headache [Unknown]
  - Dysphonia [Unknown]
  - Insomnia [Unknown]
  - Fatigue [Unknown]
  - Asthenia [Unknown]
  - Oropharyngeal pain [Unknown]
  - Factor V deficiency [Not Recovered/Not Resolved]
  - Rhinitis [Unknown]
  - Breast pain [Unknown]
  - Drug ineffective [Unknown]
  - Low density lipoprotein increased [Unknown]
  - Paraesthesia [Unknown]
  - Headache [Recovered/Resolved]
  - Sensation of heaviness [Unknown]
  - Ataxia [Unknown]
  - Nervous system disorder [Unknown]
  - Major depression [Unknown]
  - Hiatus hernia [Unknown]
  - Gastrooesophageal reflux disease [Unknown]
  - Gastric ulcer [Unknown]
  - Treatment noncompliance [Unknown]
